FAERS Safety Report 25893870 (Version 2)
Quarter: 2025Q4

REPORT INFORMATION
  Report Type: Spontaneous
  Country: US (occurrence: US)
  Receive Date: 20251008
  Receipt Date: 20251008
  Transmission Date: 20260117
  Serious: Yes (Other)
  Sender: SANDOZ
  Company Number: US-SANDOZ-SDZ2025US072975

PATIENT
  Age: 68 Year
  Sex: Female

DRUGS (1)
  1. RECLAST [Suspect]
     Active Substance: ZOLEDRONIC ACID
     Indication: Osteoporosis
     Dosage: 5 MG, OTHER (SHE RECEIVED AN INFUSION IN DECEMBER 2023 AND ANOTHER INFUSION DECEMBER 2024)
     Route: 042
     Dates: start: 20231205, end: 20241204

REACTIONS (1)
  - Osteonecrosis of jaw [Not Recovered/Not Resolved]
